FAERS Safety Report 16947479 (Version 1)
Quarter: 2019Q4

REPORT INFORMATION
  Report Type: Spontaneous
  Country: US (occurrence: US)
  Receive Date: 20191022
  Receipt Date: 20191022
  Transmission Date: 20200122
  Serious: Yes (Hospitalization, Other)
  Sender: FDA-Public Use
  Company Number: US-PFIZER INC-2019452718

PATIENT
  Age: 64 Year
  Sex: Female
  Weight: 103 kg

DRUGS (3)
  1. LYRICA [Suspect]
     Active Substance: PREGABALIN
     Indication: NEUROPATHY PERIPHERAL
     Dosage: 600 MG, DAILY, (TAKES 3 PILLS A DAY200MG IN THE MORNING AND 400MG AT NIGHT)
     Route: 048
  2. LYRICA [Suspect]
     Active Substance: PREGABALIN
     Indication: FIBROMYALGIA
  3. LYRICA [Suspect]
     Active Substance: PREGABALIN
     Indication: RESTLESS LEGS SYNDROME

REACTIONS (10)
  - Pneumonia [Recovered/Resolved]
  - Fall [Recovered/Resolved]
  - Nerve block [Unknown]
  - Gait disturbance [Unknown]
  - Sepsis [Recovered/Resolved]
  - Upper limb fracture [Recovered/Resolved]
  - Septic shock [Unknown]
  - Neuropathy peripheral [Unknown]
  - Migraine [Unknown]
  - Dysstasia [Unknown]

NARRATIVE: CASE EVENT DATE: 20190903
